FAERS Safety Report 25138790 (Version 1)
Quarter: 2025Q1

REPORT INFORMATION
  Report Type: Spontaneous
  Country: US (occurrence: US)
  Receive Date: 20250331
  Receipt Date: 20250331
  Transmission Date: 20250408
  Serious: Yes (Life-Threatening, Other)
  Sender: JOHNSON AND JOHNSON
  Company Number: US-JNJFOC-20250324566

PATIENT
  Age: 66 Year
  Sex: Male
  Weight: 72.57 kg

DRUGS (4)
  1. ERLEADA [Suspect]
     Active Substance: APALUTAMIDE
     Indication: Prostate cancer
     Route: 048
  2. ELIQUIS [Concomitant]
     Active Substance: APIXABAN
     Indication: Product used for unknown indication
     Route: 065
  3. AMIODARONE AB [Concomitant]
     Indication: Product used for unknown indication
  4. PRAVASTATIN 1A PHARMA GMBH [Concomitant]
     Indication: Product used for unknown indication

REACTIONS (4)
  - Dizziness [Unknown]
  - Balance disorder [Unknown]
  - Dysarthria [Unknown]
  - Dysstasia [Unknown]

NARRATIVE: CASE EVENT DATE: 20250308
